FAERS Safety Report 24565985 (Version 1)
Quarter: 2024Q4

REPORT INFORMATION
  Report Type: Spontaneous
  Country: GB (occurrence: GB)
  Receive Date: 20241030
  Receipt Date: 20241030
  Transmission Date: 20250114
  Serious: Yes (Other)
  Sender: RANBAXY
  Company Number: GB-MHRA-TPP4134630C10124622YC1729184029860

PATIENT
  Age: 21 Year
  Sex: Female
  Weight: 115 kg

DRUGS (9)
  1. CODEINE [Suspect]
     Active Substance: CODEINE
     Indication: Ill-defined disorder
     Dosage: 15MG
     Route: 065
  2. ORLISTAT [Concomitant]
     Active Substance: ORLISTAT
     Indication: Ill-defined disorder
     Dosage: TAKE ONE TABLET EITHER BEFORE, DURING OR UP TO 1 HOUR AFTER EACH MAIN MEAL, UP TO THREE TIMES A DAY
     Route: 065
     Dates: start: 20240920
  3. DESOGESTREL [Concomitant]
     Active Substance: DESOGESTREL
     Indication: Ill-defined disorder
     Dosage: TAKE ONE DAILY
     Route: 065
     Dates: start: 20240828
  4. COCODAMOL [Concomitant]
     Active Substance: ACETAMINOPHEN\CODEINE PHOSPHATE
     Indication: Ill-defined disorder
     Dosage: TAKE 1 OR 2 4 TIMES/DAY
     Route: 065
     Dates: start: 20241017
  5. ACETAZOLAMIDE [Concomitant]
     Active Substance: ACETAZOLAMIDE
     Indication: Ill-defined disorder
     Dosage: TAKE ONE TABLET ONCE DAILY
     Route: 065
     Dates: start: 20240501
  6. BECLOMETHASONE DIPROPIONATE [Concomitant]
     Active Substance: BECLOMETHASONE DIPROPIONATE
     Indication: Ill-defined disorder
     Dosage: TWO PUFFS TO BE INHALED TWICE A DAY
     Route: 065
     Dates: start: 20240501
  7. NORTRIPTYLINE [Concomitant]
     Active Substance: NORTRIPTYLINE
     Indication: Ill-defined disorder
     Dosage: TAKE 2 TABS AT NIGHT
     Route: 065
     Dates: start: 20240501
  8. ALBUTEROL [Concomitant]
     Active Substance: ALBUTEROL
     Indication: Ill-defined disorder
     Dosage: 2 PUFFS 4 -6 TIMES A DAY
     Route: 065
     Dates: start: 20240501
  9. SERTRALINE [Concomitant]
     Active Substance: SERTRALINE HYDROCHLORIDE
     Indication: Ill-defined disorder
     Dosage: TAKE ONE TABLET ONCE A DAY
     Route: 065
     Dates: start: 20240501

REACTIONS (1)
  - Lip swelling [Unknown]
